FAERS Safety Report 14561196 (Version 1)
Quarter: 2018Q1

REPORT INFORMATION
  Report Type: Spontaneous
  Country: US (occurrence: US)
  Receive Date: 20180220
  Receipt Date: 20180220
  Transmission Date: 20180509
  Serious: No
  Sender: FDA-Public Use
  Company Number: None

PATIENT
  Age: 48 Year
  Sex: Female

DRUGS (1)
  1. CAPECITABINE 500MG WEST-WARD [Suspect]
     Active Substance: CAPECITABINE
     Indication: RECTAL CANCER
     Dosage: 1500MG BID MON-FRI ORAL
     Route: 048
     Dates: start: 201801

REACTIONS (6)
  - Abdominal distension [None]
  - Diarrhoea [None]
  - Pain [None]
  - Dysuria [None]
  - Micturition urgency [None]
  - Blood urine present [None]

NARRATIVE: CASE EVENT DATE: 20180216
